FAERS Safety Report 10239193 (Version 1)
Quarter: 2014Q2

REPORT INFORMATION
  Report Type: Spontaneous
  Country: US (occurrence: None)
  Receive Date: 20140613
  Receipt Date: 20140613
  Transmission Date: 20141212
  Serious: Yes (Other)
  Sender: FDA-Public Use
  Company Number: None

PATIENT
  Age: 44 Year
  Sex: Male
  Weight: 111.59 kg

DRUGS (10)
  1. OMEGA 3 [Suspect]
     Indication: LIPIDS INCREASED
     Dosage: 4 TABS./20 DAILY PO
     Route: 048
     Dates: start: 20140430, end: 20140604
  2. BACLOFEN [Concomitant]
  3. METFORMIN [Concomitant]
  4. MELOXICAM [Concomitant]
  5. ZYRETEC [Concomitant]
  6. BYETTA [Concomitant]
  7. LIPITOR [Concomitant]
  8. LISINOPRIL [Concomitant]
  9. LOVAZA [Concomitant]
  10. NIASPAN [Concomitant]

REACTIONS (3)
  - Diarrhoea [None]
  - Abdominal pain [None]
  - Product substitution issue [None]
